FAERS Safety Report 10528798 (Version 1)
Quarter: 2014Q4

REPORT INFORMATION
  Report Type: Spontaneous
  Country: US (occurrence: US)
  Receive Date: 20141020
  Receipt Date: 20141020
  Transmission Date: 20150528
  Serious: Yes (Hospitalization, Other)
  Sender: FDA-Public Use
  Company Number: US-ACTAVIS-2014-22127

PATIENT
  Age: 34 Year
  Sex: Male

DRUGS (3)
  1. PHENYTOIN (AMALLC) [Suspect]
     Active Substance: PHENYTOIN
     Indication: COMPLEX PARTIAL SEIZURES
     Dosage: 700 MG, DAILY,300 MG IN THE MORNING AND 400 MG AT BEDTIME
     Route: 065
  2. ZONISAMIDE (WATSON LABORATORIES) [Suspect]
     Active Substance: ZONISAMIDE
     Indication: COMPLEX PARTIAL SEIZURES
     Dosage: 300 MG, QHS
     Route: 065
  3. ZONISAMIDE (WATSON LABORATORIES) [Suspect]
     Active Substance: ZONISAMIDE
     Dosage: 100 MG, QHS
     Route: 065

REACTIONS (13)
  - Sleep disorder [None]
  - Delusion [None]
  - Gait disturbance [None]
  - Hyperreflexia [Recovered/Resolved]
  - Nystagmus [Recovered/Resolved]
  - Palpitations [None]
  - Disturbance in attention [None]
  - Psychotic disorder [Recovered/Resolved]
  - Anticonvulsant drug level increased [Recovered/Resolved]
  - Paranoia [None]
  - Road traffic accident [None]
  - Dizziness [None]
  - Asthenia [None]
